FAERS Safety Report 5047634-1 (Version None)
Quarter: 2006Q3

REPORT INFORMATION
  Report Type: 
  Country: None (occurrence: None)
  Receive Date: 20060705
  Receipt Date: 20060619
  Transmission Date: 20061208
  Serious: Yes (Hospitalization, Other)
  Sender: FDA-Public Use
  Company Number: PAR_0646_2006

PATIENT
  Age: 49 Year
  Sex: Female
  Weight: 115.6672 kg

DRUGS (4)
  1. DECADRON [Suspect]
     Dosage: 0.75 MG QDAY PO
     Route: 048
     Dates: start: 20060301, end: 20060601
  2. ESTRADIOL [Concomitant]
  3. ZOLOFT [Concomitant]
  4. MAVIK [Concomitant]

REACTIONS (6)
  - CARDIAC DISORDER [None]
  - DYSPHAGIA [None]
  - DYSPNOEA [None]
  - OEDEMA PERIPHERAL [None]
  - TONGUE BLISTERING [None]
  - TONGUE DISORDER [None]
